FAERS Safety Report 7581149-1 (Version None)
Quarter: 2011Q2

REPORT INFORMATION
  Report Type: 
  Country: None (occurrence: None)
  Receive Date: 20110629
  Receipt Date: 20110622
  Transmission Date: 20111010
  Serious: Yes (Other)
  Sender: FDA-Public Use
  Company Number: JP-PFIZER INC-2011138860

PATIENT
  Age: 49 Year
  Sex: Female

DRUGS (2)
  1. CYCLOPHOSPHAMIDE [Suspect]
     Dosage: UNK
  2. EPIRUBICIN HYDROCHLORIDE [Suspect]
     Dosage: UNK
     Route: 042

REACTIONS (1)
  - ANGIOPATHY [None]
